FAERS Safety Report 21098306 (Version 1)
Quarter: 2022Q3

REPORT INFORMATION
  Report Type: Spontaneous
  Country: DK (occurrence: DK)
  Receive Date: 20220719
  Receipt Date: 20220719
  Transmission Date: 20221026
  Serious: Yes (Other)
  Sender: FDA-Public Use
  Company Number: DK-STRIDES ARCOLAB LIMITED-2022SP009034

PATIENT
  Age: 57 Year
  Sex: Female

DRUGS (3)
  1. PRAMIPEXOLE DIHYDROCHLORIDE [Suspect]
     Active Substance: PRAMIPEXOLE DIHYDROCHLORIDE
     Indication: Restless legs syndrome
     Dosage: UNK
     Route: 065
     Dates: start: 2007
  2. PRAMIPEXOLE DIHYDROCHLORIDE [Suspect]
     Active Substance: PRAMIPEXOLE DIHYDROCHLORIDE
     Dosage: 0.52 MILLIGRAM, 0.52 MG X 1
     Route: 065
     Dates: start: 2012
  3. PRAMIPEXOLE DIHYDROCHLORIDE [Suspect]
     Active Substance: PRAMIPEXOLE DIHYDROCHLORIDE
     Dosage: UNK (PRAMIPEXOLE WAS TAPERED OUT)
     Route: 065

REACTIONS (4)
  - Suicidal ideation [Recovered/Resolved]
  - Depression [Recovered/Resolved]
  - Gambling disorder [Recovered/Resolved]
  - Restlessness [Recovered/Resolved]
